FAERS Safety Report 6437808-7 (Version None)
Quarter: 2009Q4

REPORT INFORMATION
  Report Type: 
  Country: None (occurrence: None)
  Receive Date: 20091112
  Receipt Date: 20091105
  Transmission Date: 20100525
  Serious: Yes (Hospitalization)
  Sender: FDA-Public Use
  Company Number: JP-ABBOTT-09P-087-0607409-00

PATIENT
  Sex: Female

DRUGS (1)
  1. LEUPLIN FOR INJECTION 3.75 MG [Suspect]
     Indication: BREAST CANCER
     Route: 058
     Dates: start: 20091001

REACTIONS (1)
  - LIVER DISORDER [None]
